FAERS Safety Report 22945649 (Version 9)
Quarter: 2024Q3

REPORT INFORMATION
  Report Type: Spontaneous
  Country: GT (occurrence: GT)
  Receive Date: 20230914
  Receipt Date: 20240912
  Transmission Date: 20241017
  Serious: Yes (Hospitalization, Disabling, Other)
  Sender: SANDOZ
  Company Number: GT-002147023-NVSC2022GT298503

PATIENT
  Age: 57 Year
  Sex: Female

DRUGS (8)
  1. FULVESTRANT [Suspect]
     Active Substance: FULVESTRANT
     Indication: Product used for unknown indication
     Dosage: UNK, QMO
     Route: 065
  2. FULVESTRANT [Suspect]
     Active Substance: FULVESTRANT
     Dosage: UNK
     Route: 065
     Dates: start: 20230713
  3. FULVESTRANT [Suspect]
     Active Substance: FULVESTRANT
     Dosage: UNK
     Route: 065
  4. FULVESTRANT [Suspect]
     Active Substance: FULVESTRANT
     Dosage: UNK (FRIDAY)
     Route: 065
  5. KISQALI [Suspect]
     Active Substance: RIBOCICLIB
     Indication: Breast cancer
     Dosage: 600 MG, QD
     Route: 048
     Dates: start: 20221209
  6. KISQALI [Suspect]
     Active Substance: RIBOCICLIB
     Dosage: 600 MG, QD
     Route: 048
     Dates: start: 20230213
  7. KISQALI [Suspect]
     Active Substance: RIBOCICLIB
     Dosage: UNK (FRIDAY)
     Route: 065
     Dates: start: 20230713
  8. ZOLEDRONIC ACID [Suspect]
     Active Substance: ZOLEDRONIC ACID
     Indication: Product used for unknown indication
     Dosage: UNK
     Route: 065

REACTIONS (33)
  - Wound dehiscence [Unknown]
  - Gait inability [Unknown]
  - Face oedema [Unknown]
  - Neutropenia [Unknown]
  - Discomfort [Unknown]
  - Tumour marker abnormal [Recovering/Resolving]
  - Rhinitis allergic [Unknown]
  - Temperature regulation disorder [Unknown]
  - Dyschezia [Unknown]
  - Tachycardia [Unknown]
  - Anal haemorrhage [Unknown]
  - Dysuria [Unknown]
  - Fear [Unknown]
  - Discouragement [Unknown]
  - Urinary incontinence [Unknown]
  - Productive cough [Unknown]
  - Rhinorrhoea [Unknown]
  - Respiratory tract congestion [Unknown]
  - Peripheral swelling [Unknown]
  - Dysstasia [Unknown]
  - Gastrointestinal pain [Unknown]
  - Decreased immune responsiveness [Unknown]
  - Tumour marker decreased [Unknown]
  - Laboratory test abnormal [Unknown]
  - Pruritus [Unknown]
  - Influenza [Unknown]
  - Rash [Unknown]
  - Cough [Unknown]
  - Hypersensitivity [Not Recovered/Not Resolved]
  - Insomnia [Unknown]
  - Constipation [Unknown]
  - Fatigue [Unknown]
  - Product availability issue [Unknown]

NARRATIVE: CASE EVENT DATE: 20221201
